FAERS Safety Report 4800234-8 (Version None)
Quarter: 2005Q4

REPORT INFORMATION
  Report Type: 
  Country: None (occurrence: None)
  Receive Date: 20051017
  Receipt Date: 20050516
  Transmission Date: 20060501
  Serious: No
  Sender: FDA-Public Use
  Company Number: US-GLAXOSMITHKLINE-A0558769A

PATIENT
  Sex: Female

DRUGS (2)
  1. CEFTIN [Suspect]
     Dosage: 500MG TWICE PER DAY
     Route: 048
     Dates: start: 20050511
  2. NO CONCURRENT MEDICATION [Concomitant]

REACTIONS (4)
  - FEELING HOT [None]
  - HEART RATE INCREASED [None]
  - NAUSEA [None]
  - SINUSITIS [None]
